FAERS Safety Report 7763099-0 (Version None)
Quarter: 2011Q3

REPORT INFORMATION
  Report Type: 
  Country: None (occurrence: None)
  Receive Date: 20110920
  Receipt Date: 20110913
  Transmission Date: 20111222
  Serious: Yes (Hospitalization)
  Sender: FDA-Public Use
  Company Number: US-B.I. PHARMACEUTICALS,INC./RIDGEFIELD-2011-BP-22131BP

PATIENT
  Sex: Female

DRUGS (6)
  1. ZOCOR [Concomitant]
  2. PRADAXA [Suspect]
     Indication: ATRIAL FIBRILLATION
     Dosage: 300 MG
     Route: 048
     Dates: start: 20110910
  3. TOPROL-XL [Concomitant]
  4. ARIMIDEX [Concomitant]
  5. CARBAMAZEPINE [Concomitant]
  6. DILTIAZEM CD [Concomitant]

REACTIONS (2)
  - TRANSIENT ISCHAEMIC ATTACK [None]
  - CYSTITIS [None]
